FAERS Safety Report 13461179 (Version 4)
Quarter: 2017Q2

REPORT INFORMATION
  Report Type: Spontaneous
  Country: JP (occurrence: JP)
  Receive Date: 20170420
  Receipt Date: 20170626
  Transmission Date: 20170830
  Serious: Yes (Death)
  Sender: FDA-Public Use
  Company Number: JP-NOVOPROD-386778

PATIENT
  Age: 59 Year
  Sex: Male
  Weight: 61.5 kg

DRUGS (4)
  1. CORTRIL [Concomitant]
     Active Substance: HYDROCORTISONE
     Indication: HYPOPITUITARISM
     Dosage: UNK
     Route: 065
  2. NORDITROPIN [Suspect]
     Active Substance: SOMATROPIN
     Indication: GROWTH HORMONE DEFICIENCY
     Dosage: 0.2 MG, QD
     Route: 058
     Dates: start: 20120730
  3. NORDITROPIN [Suspect]
     Active Substance: SOMATROPIN
     Dosage: 0.2 MG, QW (DECREASED TO 0.2MG/WEEK)
     Route: 058
     Dates: start: 20130708, end: 20150713
  4. THYRADIN-S [Concomitant]
     Active Substance: LEVOTHYROXINE
     Indication: HYPOPITUITARISM
     Dosage: UNK
     Route: 065

REACTIONS (3)
  - Polycythaemia [Fatal]
  - Condition aggravated [Fatal]
  - Myelodysplastic syndrome [Fatal]

NARRATIVE: CASE EVENT DATE: 20130422
